FAERS Safety Report 5325020-4 (Version None)
Quarter: 2007Q2

REPORT INFORMATION
  Report Type: 
  Country: None (occurrence: None)
  Receive Date: 20070511
  Receipt Date: 20070511
  Transmission Date: 20071010
  Serious: No
  Sender: FDA-Public Use
  Company Number: None

PATIENT
  Age: 17 Year
  Sex: Female
  Weight: 71.2147 kg

DRUGS (1)
  1. FLUTICASONE PROPIONATE [Suspect]
     Indication: MULTIPLE ALLERGIES
     Dosage: 1 SPRAY QD

REACTIONS (1)
  - DRUG INEFFECTIVE [None]
